FAERS Safety Report 24104418 (Version 1)
Quarter: 2024Q3

REPORT INFORMATION
  Report Type: Report from Study
  Country: CA (occurrence: None)
  Receive Date: 20240717
  Receipt Date: 20240717
  Transmission Date: 20241017
  Serious: Yes (Other)
  Sender: ASTRAZENECA
  Company Number: 2019SF56619

PATIENT
  Age: 42 Year
  Sex: Female

DRUGS (10)
  1. PULMICORT TURBUHALER [Suspect]
     Active Substance: BUDESONIDE
     Indication: Asthma
     Route: 055
  2. SYMBICORT [Suspect]
     Active Substance: BUDESONIDE\FORMOTEROL FUMARATE DIHYDRATE
     Route: 055
  3. ALBUTEROL SULFATE [Suspect]
     Active Substance: ALBUTEROL SULFATE
     Route: 065
  4. ZENHALE [Suspect]
     Active Substance: FORMOTEROL FUMARATE\MOMETASONE FUROATE
     Route: 055
  5. ADVAIR HFA [Concomitant]
     Active Substance: FLUTICASONE PROPIONATE\SALMETEROL XINAFOATE
  6. CIPROFLOXACIN [Concomitant]
     Active Substance: CIPROFLOXACIN
  7. METHOTREXATE [Concomitant]
     Active Substance: METHOTREXATE
  8. PREDNISONE [Concomitant]
     Active Substance: PREDNISONE
  9. AMOXICILLIN\CLAVULANATE POTASSIUM [Concomitant]
     Active Substance: AMOXICILLIN\CLAVULANATE POTASSIUM
  10. FOLIC ACID [Concomitant]
     Active Substance: FOLIC ACID

REACTIONS (20)
  - Acrochordon [Unknown]
  - Papilloma [Unknown]
  - Asthma [Unknown]
  - Aural polyp [Unknown]
  - Full blood count abnormal [Unknown]
  - Blood urine present [Unknown]
  - Drug intolerance [Unknown]
  - Dyspnoea [Unknown]
  - Dyspnoea exertional [Unknown]
  - Eosinophilia [Unknown]
  - Excessive granulation tissue [Unknown]
  - Feeling abnormal [Unknown]
  - Hypersensitivity vasculitis [Unknown]
  - Obstructive airways disorder [Unknown]
  - Paranasal sinus hyposecretion [Unknown]
  - Respiratory symptom [Unknown]
  - Therapy non-responder [Unknown]
  - Total lung capacity increased [Unknown]
  - Throat irritation [Unknown]
  - Drug ineffective [Unknown]
